FAERS Safety Report 6535294-X (Version None)
Quarter: 2010Q1

REPORT INFORMATION
  Report Type: 
  Country: None (occurrence: None)
  Receive Date: 20100113
  Receipt Date: 20100107
  Transmission Date: 20100710
  Serious: Yes (Hospitalization)
  Sender: FDA-Public Use
  Company Number: GB-ROCHE-669627

PATIENT
  Sex: Female
  Weight: 44.6 kg

DRUGS (10)
  1. METHOXY POLYETHYLENE GLYCOL-EPOETIN BETA [Suspect]
     Dosage: FORM REPORTED AS PREFILLED SYRINGE, DATE OF LAST DOSE PRIOR TO SAE 14 OCT 2009
     Route: 042
     Dates: start: 20091014
  2. IRON (III) HYDROXIDE-SUCROSE COMPLEX [Concomitant]
     Dosage: FREQUENCY REPORTED AS WEEKLY
     Dates: start: 20091012
  3. BISOPROLOL FUMARATE [Concomitant]
     Dates: start: 20050406, end: 20071218
  4. ALFACALCIDOL [Concomitant]
     Dosage: DOSE REPORTED AS 1MCG THREE TIMES WEEKLY
     Dates: start: 20080615
  5. TINZAPARIN SODIUM [Concomitant]
     Dosage: 2500 IV ON DILYSIS
     Dates: start: 20080519
  6. HEPARIN SODIUM [Concomitant]
     Dates: start: 20070823
  7. CINACALCET HYDROCHLORIDE [Concomitant]
     Dates: start: 20070111
  8. AMLODIPINE [Concomitant]
     Dates: start: 20060329, end: 20091208
  9. CARDURA [Concomitant]
     Dates: start: 20051220
  10. CO CODAMOL [Concomitant]
     Dosage: TDD REPORTEDE AS PRN
     Dates: start: 20050620

REACTIONS (1)
  - PNEUMONIA [None]
